APPROVED DRUG PRODUCT: QUETIAPINE FUMARATE
Active Ingredient: QUETIAPINE FUMARATE
Strength: EQ 200MG BASE
Dosage Form/Route: TABLET;ORAL
Application: A078679 | Product #005
Applicant: CHARTWELL RX SCIENCES LLC
Approved: Dec 14, 2012 | RLD: No | RS: No | Type: DISCN